FAERS Safety Report 17940718 (Version 2)
Quarter: 2022Q1

REPORT INFORMATION
  Report Type: Spontaneous
  Country: US (occurrence: US)
  Receive Date: 20200625
  Receipt Date: 20220228
  Transmission Date: 20220423
  Serious: Yes (Death, Other)
  Sender: FDA-Public Use
  Company Number: US-SAARTEMIS-SAC202006190229

PATIENT
  Age: 31 Year
  Sex: Male

DRUGS (1)
  1. ZANTAC [Suspect]
     Active Substance: RANITIDINE HYDROCHLORIDE
     Indication: Dyspepsia
     Dosage: 75 MG, QD
     Dates: start: 199701, end: 201203

REACTIONS (3)
  - Brain neoplasm [Fatal]
  - Meningioma [Unknown]
  - Glioblastoma [Unknown]

NARRATIVE: CASE EVENT DATE: 20101001
